FAERS Safety Report 6917641-X (Version None)
Quarter: 2010Q3

REPORT INFORMATION
  Report Type: 
  Country: None (occurrence: None)
  Receive Date: 20100806
  Receipt Date: 20100722
  Transmission Date: 20110219
  Serious: Yes (Hospitalization, Other)
  Sender: FDA-Public Use
  Company Number: A-CH2008-22375

PATIENT
  Age: 66 Year
  Sex: Male

DRUGS (5)
  1. TRACLEER [Suspect]
     Indication: PULMONARY ARTERIAL HYPERTENSION
     Dosage: 125 MG, BID, ORAL
     Route: 048
     Dates: start: 20071101, end: 20080822
  2. IRBESARTAN + HYDROCHLOROTHIAZIDE [Concomitant]
  3. RABEPRAZOLE SODIUM [Concomitant]
  4. PREVISCAN (FLUINDIONE) [Concomitant]
  5. CADUET [Concomitant]

REACTIONS (4)
  - AUTOIMMUNE HEPATITIS [None]
  - CHOLELITHIASIS [None]
  - CHOLESTASIS [None]
  - CYTOLYTIC HEPATITIS [None]
